FAERS Safety Report 24554636 (Version 2)
Quarter: 2025Q1

REPORT INFORMATION
  Report Type: Report from Study
  Country: US (occurrence: US)
  Receive Date: 20241028
  Receipt Date: 20250220
  Transmission Date: 20250409
  Serious: Yes (Other)
  Sender: TAKEDA
  Company Number: US-TAKEDA-2024TUS103475

PATIENT
  Sex: Female

DRUGS (4)
  1. VEDOLIZUMAB [Suspect]
     Active Substance: VEDOLIZUMAB
     Indication: Colitis ulcerative
  2. VEDOLIZUMAB [Suspect]
     Active Substance: VEDOLIZUMAB
     Indication: Colitis ulcerative
     Dosage: 108 MILLIGRAM, Q2WEEKS
     Dates: start: 202409
  3. VEDOLIZUMAB [Suspect]
     Active Substance: VEDOLIZUMAB
  4. RINVOQ [Suspect]
     Active Substance: UPADACITINIB
     Indication: Product used for unknown indication

REACTIONS (6)
  - Crohn^s disease [Unknown]
  - Memory impairment [Unknown]
  - Confusional state [Unknown]
  - Arthralgia [Unknown]
  - Herpes zoster [Unknown]
  - Fatigue [Unknown]
